FAERS Safety Report 9685435 (Version 1)
Quarter: 2013Q4

REPORT INFORMATION
  Report Type: Spontaneous
  Country: US (occurrence: None)
  Receive Date: 20131112
  Receipt Date: 20131112
  Transmission Date: 20140711
  Serious: Yes (Hospitalization)
  Sender: FDA-Public Use
  Company Number: None

PATIENT
  Age: 56 Year
  Sex: Male
  Weight: 76.8 kg

DRUGS (1)
  1. ALEMTUZUMAB (CAMPATH) [Suspect]

REACTIONS (4)
  - Neutropenia [None]
  - Lymphopenia [None]
  - Sinus congestion [None]
  - Pyrexia [None]
